FAERS Safety Report 4738063-6 (Version None)
Quarter: 2005Q3

REPORT INFORMATION
  Report Type: 
  Country: None (occurrence: None)
  Receive Date: 20050805
  Receipt Date: 20050805
  Transmission Date: 20060218
  Serious: Yes (Hospitalization)
  Sender: FDA-Public Use
  Company Number: None

PATIENT
  Age: 70 Year
  Sex: Male
  Weight: 80.7 kg

DRUGS (2)
  1. HEPARIN [Suspect]
     Indication: CORONARY ARTERY SURGERY
     Dosage: 5000 U
     Dates: start: 20041207, end: 20041207
  2. MULTIPLE DRUGS [Concomitant]

REACTIONS (2)
  - HAEMATEMESIS [None]
  - PLATELET COUNT DECREASED [None]
